FAERS Safety Report 18493716 (Version 1)
Quarter: 2020Q4

REPORT INFORMATION
  Report Type: Spontaneous
  Country: US (occurrence: US)
  Receive Date: 20201112
  Receipt Date: 20201112
  Transmission Date: 20210114
  Serious: No
  Sender: FDA-Public Use
  Company Number: US-JNJFOC-20201047620

PATIENT
  Age: 46 Year
  Sex: Female
  Weight: 65.83 kg

DRUGS (1)
  1. ROGAINE [Suspect]
     Active Substance: MINOXIDIL
     Indication: ALOPECIA
     Dosage: DOSE: TOOK A FOAM IN PALM?PRODUCT WAS LAST ADMINISTERED ON 18-OCT-2020.
     Route: 061
     Dates: start: 20201008

REACTIONS (3)
  - Application site irritation [Recovered/Resolved]
  - Incorrect dose administered [Unknown]
  - Wrong technique in product usage process [Unknown]

NARRATIVE: CASE EVENT DATE: 20201008
